FAERS Safety Report 9685177 (Version 1)
Quarter: 2013Q4

REPORT INFORMATION
  Report Type: Spontaneous
  Country: US (occurrence: US)
  Receive Date: 20131113
  Receipt Date: 20131113
  Transmission Date: 20140711
  Serious: No
  Sender: FDA-Public Use
  Company Number: US-009507513-1311USA004016

PATIENT
  Sex: Female
  Weight: 53.52 kg

DRUGS (3)
  1. MIRALAX [Suspect]
     Indication: HAEMORRHOID OPERATION
     Dosage: 17 G, QD
     Route: 048
     Dates: start: 20130909
  2. MIRALAX [Suspect]
     Dosage: 17 G, QD
     Route: 048
     Dates: start: 20130909
  3. SYNTHROID [Concomitant]
     Indication: THYROID DISORDER
     Dosage: UNK, UNKNOWN

REACTIONS (2)
  - Incorrect drug administration duration [Unknown]
  - Product contamination [Unknown]
